FAERS Safety Report 24964383 (Version 1)
Quarter: 2025Q1

REPORT INFORMATION
  Report Type: Spontaneous
  Country: RU (occurrence: RU)
  Receive Date: 20250213
  Receipt Date: 20250213
  Transmission Date: 20250409
  Serious: Yes (Other)
  Sender: RANBAXY
  Company Number: RU-SUN PHARMACEUTICAL INDUSTRIES LTD-2025R1-493090

PATIENT
  Age: 8 Year
  Sex: Female

DRUGS (2)
  1. PREDNISONE [Suspect]
     Active Substance: PREDNISONE
     Indication: Nephroblastoma
     Dosage: 1 MILLIGRAM/KILOGRAM, QD
     Route: 065
  2. SOLU-MEDROL [Suspect]
     Active Substance: METHYLPREDNISOLONE SODIUM SUCCINATE
     Indication: Nephroblastoma
     Route: 065

REACTIONS (1)
  - Disease progression [Unknown]
